FAERS Safety Report 23056312 (Version 2)
Quarter: 2023Q4

REPORT INFORMATION
  Report Type: Spontaneous
  Country: GB (occurrence: GB)
  Receive Date: 20231011
  Receipt Date: 20231019
  Transmission Date: 20240110
  Serious: Yes (Other)
  Sender: FDA-Public Use
  Company Number: GB-002147023-NVSC2020GB370824

PATIENT
  Age: 60 Year
  Sex: Male
  Weight: 83 kg

DRUGS (15)
  1. BACLOFEN [Suspect]
     Active Substance: BACLOFEN
     Indication: Product used for unknown indication
     Dosage: UNK
     Route: 048
  2. BOTOX [Suspect]
     Active Substance: ONABOTULINUMTOXINA
     Indication: Muscle spasticity
     Dosage: 1 DOSAGE FORM, QD SINGLE
     Route: 065
     Dates: start: 20190307, end: 20190307
  3. BOTOX [Suspect]
     Active Substance: ONABOTULINUMTOXINA
     Dosage: UNK
     Route: 065
     Dates: start: 20230905
  4. BOTOX [Suspect]
     Active Substance: ONABOTULINUMTOXINA
     Dosage: UNK UNK, SINGLE; AS NECESSARY;
     Route: 065
     Dates: start: 20190507, end: 20190507
  5. FLUCLOXACILLIN [Suspect]
     Active Substance: FLUCLOXACILLIN
     Indication: Vascular device infection
     Dosage: 2 G, QD (ONCE A DAY)
     Route: 065
  6. FLUCLOXACILLIN [Suspect]
     Active Substance: FLUCLOXACILLIN
     Dosage: 8 G, QD, ONCE A DAY (2 GRAM, QID (QDS) (2 G, 4X/DAY)
     Route: 065
  7. GABAPENTIN [Suspect]
     Active Substance: GABAPENTIN
     Indication: Ill-defined disorder
     Dosage: UNK
     Route: 048
  8. ALLOPURINOL [Concomitant]
     Active Substance: ALLOPURINOL
     Indication: Ill-defined disorder
     Dosage: UNK
     Route: 065
  9. DULOXETINE [Concomitant]
     Active Substance: DULOXETINE
     Indication: Ill-defined disorder
     Dosage: UNK
     Route: 016
  10. ENOXAPARIN [Concomitant]
     Active Substance: ENOXAPARIN
     Indication: Ill-defined disorder
     Dosage: UNK
     Route: 065
  11. FLUCONAZOLE [Concomitant]
     Active Substance: FLUCONAZOLE
     Indication: Ill-defined disorder
     Dosage: UNK
     Route: 048
  12. LAMICTAL [Concomitant]
     Active Substance: LAMOTRIGINE
     Indication: Ill-defined disorder
     Dosage: UNK
     Route: 065
  13. OMEPRAZOLE [Concomitant]
     Active Substance: OMEPRAZOLE
     Indication: Ill-defined disorder
     Dosage: UNK
     Route: 048
  14. PEGFILGRASTIM [Concomitant]
     Active Substance: PEGFILGRASTIM
     Indication: Ill-defined disorder
     Dosage: UNK
     Route: 065
  15. PROPRANOLOL [Concomitant]
     Active Substance: PROPRANOLOL HYDROCHLORIDE
     Indication: Ill-defined disorder
     Dosage: UNK
     Route: 065

REACTIONS (5)
  - Simple partial seizures [Recovered/Resolved]
  - Injection site pain [Unknown]
  - Epilepsy [Recovered/Resolved]
  - Muscle spasms [Unknown]
  - Somnolence [Unknown]

NARRATIVE: CASE EVENT DATE: 20230912
